FAERS Safety Report 5942383-7 (Version None)
Quarter: 2008Q4

REPORT INFORMATION
  Report Type: 
  Country: None (occurrence: None)
  Receive Date: 20081105
  Receipt Date: 20081027
  Transmission Date: 20090506
  Serious: No
  Sender: FDA-Public Use
  Company Number: US-B.I. PHARMACEUTICALS,INC./RIDGEFIELD-2008-BP-16502BP

PATIENT
  Age: 76 Year
  Sex: Male

DRUGS (1)
  1. FLOMAX [Suspect]
     Indication: BENIGN PROSTATIC HYPERPLASIA
     Dosage: .4MG
     Route: 048
     Dates: start: 20081020, end: 20081023

REACTIONS (5)
  - ABASIA [None]
  - DISORIENTATION [None]
  - DIZZINESS [None]
  - FEAR OF DEATH [None]
  - GENERAL PHYSICAL CONDITION ABNORMAL [None]
